FAERS Safety Report 24936757 (Version 2)
Quarter: 2025Q1

REPORT INFORMATION
  Report Type: Spontaneous
  Country: BG (occurrence: BG)
  Receive Date: 20250206
  Receipt Date: 20250213
  Transmission Date: 20250408
  Serious: Yes (Other)
  Sender: ABBVIE
  Company Number: BG-ABBVIE-6119837

PATIENT
  Age: 45 Year
  Sex: Female

DRUGS (1)
  1. HUMIRA [Suspect]
     Active Substance: ADALIMUMAB
     Indication: Colitis
     Route: 058
     Dates: start: 2020

REACTIONS (6)
  - Mucous stools [Unknown]
  - SARS-CoV-2 test positive [Unknown]
  - Cough [Unknown]
  - Frequent bowel movements [Unknown]
  - Pyrexia [Unknown]
  - Haematochezia [Unknown]
